FAERS Safety Report 6071313-5 (Version None)
Quarter: 2009Q1

REPORT INFORMATION
  Report Type: 
  Country: None (occurrence: None)
  Receive Date: 20090209
  Receipt Date: 20090204
  Transmission Date: 20090719
  Serious: Yes (Other)
  Sender: FDA-Public Use
  Company Number: US-MERCK-0901USA03263

PATIENT
  Age: 54 Year
  Sex: Female

DRUGS (4)
  1. JANUMET [Suspect]
     Indication: TYPE 2 DIABETES MELLITUS
     Route: 048
     Dates: start: 20081101, end: 20081101
  2. JANUMET [Suspect]
     Route: 048
     Dates: start: 20081201
  3. METFORMIN [Concomitant]
     Route: 065
     Dates: end: 20081101
  4. JANUVIA [Concomitant]
     Route: 048
     Dates: start: 20080301, end: 20081101

REACTIONS (2)
  - INCORRECT DOSE ADMINISTERED [None]
  - PANCREATITIS [None]
